FAERS Safety Report 21830536 (Version 1)
Quarter: 2023Q1

REPORT INFORMATION
  Report Type: Spontaneous
  Country: GB (occurrence: GB)
  Receive Date: 20230106
  Receipt Date: 20230106
  Transmission Date: 20230417
  Serious: Yes (Death, Other)
  Sender: FDA-Public Use
  Company Number: None

PATIENT
  Age: 45 Year
  Sex: Male

DRUGS (3)
  1. LAMOTRIGINE [Suspect]
     Active Substance: LAMOTRIGINE
     Indication: Epilepsy
     Dosage: UNKNOWN
     Route: 065
  2. EPILIM [Concomitant]
     Active Substance: VALPROATE SODIUM
     Indication: Product used for unknown indication
     Dosage: UNKNOWN
     Route: 065
  3. NYTOL [Concomitant]
     Active Substance: DIPHENHYDRAMINE HYDROCHLORIDE
     Indication: Sleep disorder
     Dosage: UNKNOWN
     Route: 065
     Dates: start: 20220702, end: 20220702

REACTIONS (11)
  - Completed suicide [Fatal]
  - Appetite disorder [Fatal]
  - Headache [Fatal]
  - Dyskinesia [Fatal]
  - Depression [Fatal]
  - Confusional state [Fatal]
  - Hallucination [Fatal]
  - Disturbance in attention [Fatal]
  - Aggression [Fatal]
  - Agitation [Fatal]
  - Abnormal behaviour [Fatal]

NARRATIVE: CASE EVENT DATE: 20220703
